FAERS Safety Report 17305393 (Version 1)
Quarter: 2020Q1

REPORT INFORMATION
  Report Type: Spontaneous
  Country: US (occurrence: US)
  Receive Date: 20200123
  Receipt Date: 20200123
  Transmission Date: 20200409
  Serious: Yes (Hospitalization)
  Sender: FDA-Public Use
  Company Number: US-VERTEX PHARMACEUTICALS-2020-001030

PATIENT
  Sex: Female
  Weight: 24 kg

DRUGS (1)
  1. SYMDEKO [Suspect]
     Active Substance: IVACAFTOR\TEZACAFTOR
     Indication: CYSTIC FIBROSIS
     Dosage: 50MG TEZACAFTOR/75 MG IVACAFTOR AM; 75MG IVACAFTOR PM
     Route: 048
     Dates: start: 201911

REACTIONS (1)
  - Infective pulmonary exacerbation of cystic fibrosis [Unknown]
